FAERS Safety Report 25440077 (Version 3)
Quarter: 2025Q3

REPORT INFORMATION
  Report Type: Spontaneous
  Country: CO (occurrence: CO)
  Receive Date: 20250616
  Receipt Date: 20250827
  Transmission Date: 20251020
  Serious: No
  Sender: PFIZER
  Company Number: CO-PFIZER INC-202500118651

PATIENT
  Age: 13 Year
  Sex: Male

DRUGS (1)
  1. GENOTROPIN [Suspect]
     Active Substance: SOMATROPIN
     Dosage: 1.8 MG, DAILY

REACTIONS (1)
  - Device leakage [Unknown]

NARRATIVE: CASE EVENT DATE: 20250301
